FAERS Safety Report 8797011 (Version 1)
Quarter: 2012Q4

REPORT INFORMATION
  Report Type: 
  Country: AU (occurrence: AU)
  Receive Date: 20120920
  Receipt Date: 20120920
  Transmission Date: 20130627
  Serious: Yes (Disabling, Other)
  Sender: FDA-Public Use
  Company Number: PHHY2012AU037974

PATIENT
  Age: 70 Year
  Sex: Female

DRUGS (7)
  1. ACLASTA [Suspect]
     Indication: OSTEOPOROSIS
     Dosage: 5 mg
     Route: 042
     Dates: start: 20120209
  2. INDAPAMIDE [Concomitant]
     Dosage: 2.5 mg, daily
  3. FLIXOTAIDE [Concomitant]
     Dosage: 250 mcg two puffs BID
  4. OMEPRAZOLE [Concomitant]
     Dosage: 20 mg, QD
  5. POTASSIUM [Concomitant]
     Dosage: 2 DF, BID
  6. CALCIUM [Concomitant]
  7. VITAMIN D [Concomitant]
     Dosage: 2 DF (500 mg/400 IU)

REACTIONS (24)
  - Uveitis [Recovered/Resolved]
  - Eye pain [Unknown]
  - Ocular hyperaemia [Unknown]
  - Vision blurred [Unknown]
  - Conjunctival oedema [Unknown]
  - Intraocular pressure decreased [Unknown]
  - Joint swelling [Not Recovered/Not Resolved]
  - Oral discomfort [Not Recovered/Not Resolved]
  - Pain in extremity [Not Recovered/Not Resolved]
  - Pain in jaw [Not Recovered/Not Resolved]
  - Mastication disorder [Not Recovered/Not Resolved]
  - Paraesthesia [Not Recovered/Not Resolved]
  - Pain [Not Recovered/Not Resolved]
  - Arthralgia [Not Recovered/Not Resolved]
  - Musculoskeletal pain [Not Recovered/Not Resolved]
  - Iritis [Recovering/Resolving]
  - Sedation [Unknown]
  - Medial tibial stress syndrome [Unknown]
  - Toothache [Unknown]
  - Oral pain [Unknown]
  - Bone pain [Not Recovered/Not Resolved]
  - Malaise [Unknown]
  - Oedema peripheral [Not Recovered/Not Resolved]
  - Flank pain [Unknown]
